FAERS Safety Report 6148294-9 (Version None)
Quarter: 2009Q2

REPORT INFORMATION
  Report Type: 
  Country: None (occurrence: None)
  Receive Date: 20090406
  Receipt Date: 20090327
  Transmission Date: 20091009
  Serious: Yes (Hospitalization, Other)
  Sender: FDA-Public Use
  Company Number: 1-17716015

PATIENT
  Age: 74 Year
  Sex: Male
  Weight: 102.0593 kg

DRUGS (2)
  1. AMIODARONE HCL [Suspect]
     Indication: ARRHYTHMIA
     Dosage: 800 MG TWICE DAILY, ORAL
     Route: 048
     Dates: start: 20081208
  2. DIGOXIN [Suspect]
     Dates: end: 20081201

REACTIONS (8)
  - BALANCE DISORDER [None]
  - BLOOD GLUCOSE DECREASED [None]
  - BLOOD GLUCOSE INCREASED [None]
  - BLOOD PRESSURE DECREASED [None]
  - DIZZINESS [None]
  - GAIT DISTURBANCE [None]
  - UNRESPONSIVE TO STIMULI [None]
  - WEIGHT INCREASED [None]
